FAERS Safety Report 20746211 (Version 8)
Quarter: 2023Q1

REPORT INFORMATION
  Report Type: Spontaneous
  Country: US (occurrence: US)
  Receive Date: 20220425
  Receipt Date: 20230126
  Transmission Date: 20230418
  Serious: No
  Sender: FDA-Public Use
  Company Number: US-PFIZER INC-202200551193

PATIENT
  Age: 77 Year
  Sex: Female

DRUGS (5)
  1. IBRANCE [Suspect]
     Active Substance: PALBOCICLIB
     Dosage: 125 MG
     Dates: start: 20220401
  2. IBRANCE [Suspect]
     Active Substance: PALBOCICLIB
     Dosage: 125 MG
     Dates: start: 20220406
  3. IBRANCE [Suspect]
     Active Substance: PALBOCICLIB
     Dosage: UNK
  4. IBRANCE [Suspect]
     Active Substance: PALBOCICLIB
     Dosage: 125 MG
     Dates: start: 20220415, end: 20221209
  5. XGEVA [Suspect]
     Active Substance: DENOSUMAB
     Dosage: UNK

REACTIONS (25)
  - Headache [Recovered/Resolved]
  - Diarrhoea [Recovered/Resolved]
  - Fatigue [Not Recovered/Not Resolved]
  - Dizziness [Unknown]
  - Chapped lips [Unknown]
  - Feeling cold [Unknown]
  - Epistaxis [Unknown]
  - Taste disorder [Unknown]
  - Ageusia [Unknown]
  - Pruritus [Unknown]
  - Decreased appetite [Unknown]
  - Stomatitis [Recovering/Resolving]
  - Full blood count abnormal [Unknown]
  - Abdominal pain upper [Not Recovered/Not Resolved]
  - Abdominal discomfort [Not Recovered/Not Resolved]
  - Nausea [Unknown]
  - Alopecia [Unknown]
  - White blood cell count decreased [Recovered/Resolved]
  - Malaise [Unknown]
  - Discomfort [Unknown]
  - Parosmia [Unknown]
  - Eating disorder [Unknown]
  - Chromaturia [Unknown]
  - Vomiting [Unknown]
  - COVID-19 [Not Recovered/Not Resolved]

NARRATIVE: CASE EVENT DATE: 20220401
